FAERS Safety Report 23524875 (Version 2)
Quarter: 2024Q2

REPORT INFORMATION
  Report Type: Spontaneous
  Country: US (occurrence: US)
  Receive Date: 20240215
  Receipt Date: 20240418
  Transmission Date: 20240715
  Serious: Yes (Hospitalization, Other)
  Sender: FDA-Public Use
  Company Number: US-BRISTOL-MYERS SQUIBB COMPANY-2024-020280

PATIENT
  Age: 85 Year
  Sex: Male
  Weight: 92.08 kg

DRUGS (1)
  1. POMALYST [Suspect]
     Active Substance: POMALIDOMIDE
     Indication: Plasma cell myeloma
     Dosage: 3 WEEKS ON, 1 WEEK OFF
     Route: 048

REACTIONS (9)
  - Dry skin [Unknown]
  - Fall [Recovering/Resolving]
  - Face injury [Recovering/Resolving]
  - Hypoaesthesia [Unknown]
  - SARS-CoV-2 test positive [Unknown]
  - Coma [Recovering/Resolving]
  - Blood glucose decreased [Recovering/Resolving]
  - Loss of consciousness [Recovering/Resolving]
  - Product dose omission issue [Unknown]

NARRATIVE: CASE EVENT DATE: 20240101
